FAERS Safety Report 7042012-8 (Version None)
Quarter: 2010Q4

REPORT INFORMATION
  Report Type: 
  Country: None (occurrence: None)
  Receive Date: 20101013
  Receipt Date: 20100510
  Transmission Date: 20110411
  Serious: No
  Sender: FDA-Public Use
  Company Number: US-ASTRAZENECA-2010SE21223

PATIENT
  Age: 57 Year
  Sex: Female

DRUGS (5)
  1. SYMBICORT [Suspect]
     Indication: ASTHMA
     Dosage: 160/4.5 UG TWO SPRAY
     Route: 055
  2. SYMBICORT [Suspect]
     Dosage: 160/4.5 UG ONE SPRAY
     Route: 055
  3. SYMBICORT [Suspect]
     Dosage: 80/4.5 UG
     Route: 055
     Dates: start: 20100401
  4. ATROVENT [Concomitant]
     Dosage: THREE-FOUR TIMES A DAY
  5. PROVENTIL [Concomitant]

REACTIONS (2)
  - ASTHMA [None]
  - MUSCLE SPASMS [None]
